FAERS Safety Report 9332358 (Version 1)
Quarter: 2013Q2

REPORT INFORMATION
  Report Type: Report from Study
  Country: JP (occurrence: JP)
  Receive Date: 20130606
  Receipt Date: 20130606
  Transmission Date: 20140414
  Serious: Yes (Hospitalization, Other)
  Sender: FDA-Public Use
  Company Number: PHHY2012JP035554

PATIENT
  Age: 43 Year
  Sex: Male

DRUGS (12)
  1. IMUSERA [Suspect]
     Indication: RELAPSING-REMITTING MULTIPLE SCLEROSIS
     Dosage: 0.5 MG, QD
     Route: 048
     Dates: start: 20120312, end: 20120420
  2. SOL-MELCORT [Suspect]
     Indication: MULTIPLE SCLEROSIS
     Dosage: 1000 MG, UNK
     Route: 051
     Dates: start: 20110318, end: 20110320
  3. SOL-MELCORT [Suspect]
     Dosage: 1000 MG, UNK
     Dates: start: 20110811, end: 20110813
  4. SOL-MELCORT [Suspect]
     Dosage: 1000 MG, UNK
     Dates: start: 20111005, end: 20111007
  5. SOL-MELCORT [Suspect]
     Dosage: 1000 MG, UNK
     Dates: start: 20111024, end: 20111026
  6. SOL-MELCORT [Suspect]
     Dosage: 1000 MG, UNK
     Dates: start: 20111124, end: 20111126
  7. SOL-MELCORT [Suspect]
     Dosage: 1000 MG, UNK
     Dates: start: 20120308, end: 20120310
  8. SOL-MELCORT [Suspect]
     Dosage: 1000 MG, UNK
     Dates: start: 20120403, end: 20120405
  9. SOL-MELCORT [Suspect]
     Dosage: 1000 MG, UNK
     Route: 051
     Dates: start: 20120411, end: 20120413
  10. ALFAROL [Concomitant]
     Dosage: 1 UG, DAILY
     Route: 048
  11. PARIET [Concomitant]
     Dosage: 10 MG, DAILY
     Route: 048
  12. BAKTAR [Concomitant]
     Dosage: 0.5 G, UNK
     Route: 048

REACTIONS (5)
  - Neurological decompensation [Recovering/Resolving]
  - Hepatic function abnormal [Recovering/Resolving]
  - Blood bilirubin increased [Unknown]
  - Alanine aminotransferase increased [Unknown]
  - Gamma-glutamyltransferase increased [Unknown]
